FAERS Safety Report 6998233-3 (Version None)
Quarter: 2010Q3

REPORT INFORMATION
  Report Type: 
  Country: None (occurrence: None)
  Receive Date: 20100920
  Receipt Date: 20100701
  Transmission Date: 20110219
  Serious: Yes (Other)
  Sender: FDA-Public Use
  Company Number: US-ASTRAZENECA-2007UW07750

PATIENT
  Age: 15641 Day
  Sex: Female
  Weight: 81.6 kg

DRUGS (21)
  1. SEROQUEL [Suspect]
     Indication: BIPOLAR DISORDER
     Dosage: STRENGTH- 200MG, 300 MG, 600 MG.  DOSE- 200 MG TO 900 MG
     Route: 048
     Dates: start: 20001218, end: 20070723
  2. RISPERDAL [Suspect]
     Indication: BIPOLAR DISORDER
     Route: 065
  3. ZYPREXA [Suspect]
     Indication: HALLUCINATION, AUDITORY
     Dosage: 5 MG TO 20 MG
     Route: 065
     Dates: start: 20010329, end: 20010425
  4. ZYPREXA [Suspect]
     Indication: BIPOLAR DISORDER
     Dosage: 5 MG TO 20 MG
     Route: 065
     Dates: start: 20010329, end: 20010425
  5. ABILIFY [Concomitant]
  6. GEODON [Concomitant]
  7. HALDOL [Concomitant]
  8. HYDROCODONE BITARTRATE AND ACETAMINOPHEN [Concomitant]
     Dosage: STRENGTH- 5-500, 7.5-50. TAKE 1-2 TABLETS
     Dates: start: 20010422
  9. CYCLOBENZAPRINE [Concomitant]
     Dosage: TAKE 1 TABLET
     Route: 048
     Dates: start: 20040822
  10. DOXEPIN HCL [Concomitant]
     Dosage: STRENGTH- 150 MG, 300 MG.  DOSE- 150-300 MG DAILY
     Route: 048
     Dates: start: 20001210
  11. NAPROXEN [Concomitant]
     Dosage: 440 MG - 500 MG DAILY
     Route: 048
     Dates: start: 20050831
  12. PREDNISONE [Concomitant]
     Dosage: 20-60 MG DAILY
     Dates: start: 20010120
  13. LISINOPRIL [Concomitant]
     Dosage: TAKE 1 TABLET
     Route: 048
     Dates: start: 20061013
  14. AVELOX [Concomitant]
     Dosage: TAKE 1 TABLET
     Route: 048
     Dates: start: 20061013
  15. AMBIEN [Concomitant]
     Dosage: STRENGTH- 5 MG, 10 MG, 12.5 MG.  DOSE- 5 MG-12.5 MG DAILY
     Route: 048
     Dates: start: 20060412
  16. HALOPERIDOL [Concomitant]
     Dosage: TAKE 1 TABLET
     Route: 048
     Dates: start: 20061016
  17. ACETAMINOPHEN /COD [Concomitant]
     Dosage: TAKE 1 TO 2 TABLET
     Dates: start: 20061027
  18. NORVASC [Concomitant]
     Dosage: TAKE 1 TABLET
     Route: 048
     Dates: start: 20061221
  19. LORAZEPAM [Concomitant]
     Dates: start: 20061221
  20. PROZAC [Concomitant]
     Dates: start: 20001226
  21. PAXIL CR [Concomitant]
     Dates: start: 20040605

REACTIONS (5)
  - BLOOD GLUCOSE INCREASED [None]
  - DIABETIC KETOACIDOSIS [None]
  - HYPERGLYCAEMIA [None]
  - TYPE 2 DIABETES MELLITUS [None]
  - URINE KETONE BODY [None]
